FAERS Safety Report 25651514 (Version 3)
Quarter: 2025Q3

REPORT INFORMATION
  Report Type: Report from Study
  Country: KR (occurrence: KR)
  Receive Date: 20250806
  Receipt Date: 20250901
  Transmission Date: 20251021
  Serious: Yes (Other)
  Sender: ASTELLAS
  Company Number: KR-ASTELLAS-2025-AER-042550

PATIENT
  Age: 77 Year
  Sex: Female
  Weight: 55 kg

DRUGS (45)
  1. ENFORTUMAB VEDOTIN-EJFV [Suspect]
     Active Substance: ENFORTUMAB VEDOTIN-EJFV
     Indication: Transitional cell carcinoma metastatic
     Route: 042
     Dates: start: 20241024
  2. ENFORTUMAB VEDOTIN-EJFV [Suspect]
     Active Substance: ENFORTUMAB VEDOTIN-EJFV
     Route: 042
     Dates: start: 20241031
  3. ENFORTUMAB VEDOTIN-EJFV [Suspect]
     Active Substance: ENFORTUMAB VEDOTIN-EJFV
     Route: 042
     Dates: start: 20241114
  4. ENFORTUMAB VEDOTIN-EJFV [Suspect]
     Active Substance: ENFORTUMAB VEDOTIN-EJFV
     Route: 042
     Dates: start: 20241121
  5. ENFORTUMAB VEDOTIN-EJFV [Suspect]
     Active Substance: ENFORTUMAB VEDOTIN-EJFV
     Route: 042
     Dates: start: 20241205
  6. ENFORTUMAB VEDOTIN-EJFV [Suspect]
     Active Substance: ENFORTUMAB VEDOTIN-EJFV
     Route: 042
     Dates: start: 20241212
  7. ENFORTUMAB VEDOTIN-EJFV [Suspect]
     Active Substance: ENFORTUMAB VEDOTIN-EJFV
     Route: 042
     Dates: start: 20241226
  8. ENFORTUMAB VEDOTIN-EJFV [Suspect]
     Active Substance: ENFORTUMAB VEDOTIN-EJFV
     Route: 042
     Dates: start: 20250102
  9. ENFORTUMAB VEDOTIN-EJFV [Suspect]
     Active Substance: ENFORTUMAB VEDOTIN-EJFV
     Route: 042
     Dates: start: 20250206
  10. ENFORTUMAB VEDOTIN-EJFV [Suspect]
     Active Substance: ENFORTUMAB VEDOTIN-EJFV
     Route: 042
     Dates: start: 20250213
  11. ENFORTUMAB VEDOTIN-EJFV [Suspect]
     Active Substance: ENFORTUMAB VEDOTIN-EJFV
     Route: 042
     Dates: start: 20250304
  12. ENFORTUMAB VEDOTIN-EJFV [Suspect]
     Active Substance: ENFORTUMAB VEDOTIN-EJFV
     Route: 042
     Dates: start: 20250311
  13. ENFORTUMAB VEDOTIN-EJFV [Suspect]
     Active Substance: ENFORTUMAB VEDOTIN-EJFV
     Route: 042
     Dates: start: 20250325
  14. ENFORTUMAB VEDOTIN-EJFV [Suspect]
     Active Substance: ENFORTUMAB VEDOTIN-EJFV
     Route: 042
     Dates: start: 20250401, end: 20250401
  15. PEMBROLIZUMAB [Suspect]
     Active Substance: PEMBROLIZUMAB
     Indication: Transitional cell carcinoma metastatic
     Route: 065
     Dates: start: 20241024
  16. PEMBROLIZUMAB [Suspect]
     Active Substance: PEMBROLIZUMAB
     Route: 065
     Dates: start: 20241114
  17. PEMBROLIZUMAB [Suspect]
     Active Substance: PEMBROLIZUMAB
     Route: 065
     Dates: start: 20241205
  18. PEMBROLIZUMAB [Suspect]
     Active Substance: PEMBROLIZUMAB
     Route: 065
     Dates: start: 20241226
  19. PEMBROLIZUMAB [Suspect]
     Active Substance: PEMBROLIZUMAB
     Route: 065
     Dates: start: 20250206
  20. PEMBROLIZUMAB [Suspect]
     Active Substance: PEMBROLIZUMAB
     Route: 065
     Dates: start: 20250304
  21. PEMBROLIZUMAB [Suspect]
     Active Substance: PEMBROLIZUMAB
     Route: 065
     Dates: start: 20250325
  22. MIRABEGRON [Concomitant]
     Active Substance: MIRABEGRON
     Indication: Product used for unknown indication
     Dosage: ONGOING
     Route: 048
     Dates: start: 20241024
  23. TAMSULOSIN HYDROCHLORIDE [Concomitant]
     Active Substance: TAMSULOSIN HYDROCHLORIDE
     Indication: Product used for unknown indication
     Dosage: HANMI TAMS CAP 0.4MG, ONGOING
     Route: 048
     Dates: start: 20241021
  24. CAFSOL [Concomitant]
     Indication: Nutritional supplementation
     Route: 042
     Dates: start: 20241024
  25. YUNGJIN MELATONIN PR [Concomitant]
     Indication: Prophylaxis
     Dosage: ONGOING
     Route: 048
     Dates: start: 20241024
  26. PRETWYN [Concomitant]
     Indication: Hypertension
     Dosage: PRETWYN TAB 40/5MG, ONGOING
     Route: 048
     Dates: start: 20241024
  27. ESODUO [Concomitant]
     Indication: Prophylaxis
     Dosage: ESODUO TAB 20/800MG, ONGOING
     Route: 048
     Dates: start: 20241023
  28. LIPILOU [Concomitant]
     Indication: Hyperlipidaemia
     Dosage: ONGOING
     Route: 048
     Dates: start: 20241023
  29. LOXONIN DONGWHA [Concomitant]
     Indication: Pain prophylaxis
     Dosage: ONGOING
     Route: 048
     Dates: start: 20240801
  30. DEXAMETHASONE DISODIUM PHOSPHATE KUKJE [Concomitant]
     Indication: Chemotherapy side effect prophylaxis
     Route: 042
     Dates: start: 20241024, end: 20250422
  31. PHENIL [Concomitant]
     Indication: Chemotherapy side effect prophylaxis
     Route: 042
     Dates: start: 20241024
  32. METOCLOPRAMIDE HYDROCHLORIDE [Concomitant]
     Active Substance: METOCLOPRAMIDE HYDROCHLORIDE
     Indication: Chemotherapy side effect prophylaxis
     Route: 042
     Dates: start: 20241024
  33. PLASMA SOLUTION A [Concomitant]
     Indication: Prophylaxis
     Route: 042
     Dates: start: 20241024
  34. ENCOVER SOLN 200mL (CORN) [Concomitant]
     Indication: Prophylaxis
     Route: 048
     Dates: start: 20241028
  35. ENCOVER SOLN 200mL (COFFEE) [Concomitant]
     Indication: Prophylaxis
     Route: 048
     Dates: start: 20241028
  36. DAEWON MEGESTROL ACETATE [Concomitant]
     Indication: Prophylaxis
     Dosage: ONGOING
     Route: 048
     Dates: start: 20241028
  37. COMPLEX PHAZYME [Concomitant]
     Indication: Prophylaxis
     Dosage: COMPLEX PHAZYME TWO-LAYER
     Route: 048
     Dates: start: 20241026, end: 20250210
  38. PALSERON [Concomitant]
     Indication: Chemotherapy side effect prophylaxis
     Route: 042
     Dates: start: 20241031, end: 20250401
  39. XYZAL [Concomitant]
     Active Substance: LEVOCETIRIZINE DIHYDROCHLORIDE
     Indication: Prophylaxis
     Route: 048
     Dates: start: 20241031, end: 20241104
  40. BESTIDINE [Concomitant]
     Indication: Prophylaxis
     Dosage: 20MG 1 TAB ? 2 ? 7DAYS
     Route: 048
     Dates: start: 20241106, end: 20250303
  41. NesBell [Concomitant]
     Indication: Anaemia prophylaxis
     Route: 058
     Dates: start: 20241205, end: 20250422
  42. FEROBA-YOU SR [Concomitant]
     Indication: Anaemia prophylaxis
     Dosage: ONGOING
     Route: 048
     Dates: start: 20241031
  43. Uro-Vaxom [Concomitant]
     Indication: Product used for unknown indication
     Dosage: ONGOING
     Route: 048
     Dates: start: 20240801
  44. AZEPTIN [AZELASTINE] [Concomitant]
     Indication: Product used for unknown indication
     Dosage: 1MG 1 TAB ? 2 ? 7DAYS
     Route: 065
  45. ADIPAMAT [Concomitant]
     Indication: Product used for unknown indication
     Dosage: 10MG 1 TAB ? 1 ? 7DAYS
     Route: 065

REACTIONS (9)
  - Neuropathy peripheral [Not Recovered/Not Resolved]
  - Neuropathy peripheral [Not Recovered/Not Resolved]
  - Rash [Recovered/Resolved]
  - Haematuria [Recovered/Resolved]
  - Rash [Not Recovered/Not Resolved]
  - Oedema [Recovered/Resolved]
  - Pollakiuria [Not Recovered/Not Resolved]
  - Insomnia [Recovered/Resolved]
  - Aspartate aminotransferase increased [Recovered/Resolved]

NARRATIVE: CASE EVENT DATE: 20241105
